FAERS Safety Report 9201207 (Version 1)
Quarter: 2013Q2

REPORT INFORMATION
  Report Type: Spontaneous
  Country: BR (occurrence: BR)
  Receive Date: 20130401
  Receipt Date: 20130401
  Transmission Date: 20140414
  Serious: Yes (Other)
  Sender: FDA-Public Use
  Company Number: PHHY2013BR030941

PATIENT
  Sex: Female

DRUGS (4)
  1. DIOVAN [Suspect]
     Indication: HYPERTENSION
     Dosage: 1 DF, (320MG), A DAY
     Route: 048
  2. DIOVAN [Suspect]
     Dosage: 2 DF, (160MG), A DAY
     Route: 048
  3. APRESOLINE [Suspect]
     Indication: HYPERTENSION
     Dosage: 2 DF (50 MG), A DAY
     Route: 048
  4. ATENOLOL [Concomitant]
     Indication: HYPERTENSION
     Dosage: 1 DF, A DAY
     Route: 048

REACTIONS (3)
  - Upper limb fracture [Recovering/Resolving]
  - Malaise [Recovered/Resolved]
  - Myalgia [Recovering/Resolving]
